FAERS Safety Report 25438522 (Version 1)
Quarter: 2025Q2

REPORT INFORMATION
  Report Type: Spontaneous
  Country: JP (occurrence: JP)
  Receive Date: 20250616
  Receipt Date: 20250616
  Transmission Date: 20250716
  Serious: Yes (Other)
  Sender: ACCORD
  Company Number: JP-MLMSERVICE-20250603-PI507075-00232-4

PATIENT
  Age: 51 Year
  Sex: Male

DRUGS (19)
  1. MYCOPHENOLATE MOFETIL [Suspect]
     Active Substance: MYCOPHENOLATE MOFETIL
     Indication: Chronic graft versus host disease in liver
     Dates: start: 2022, end: 2024
  2. CYCLOSPORINE [Concomitant]
     Active Substance: CYCLOSPORINE
     Indication: Chronic graft versus host disease
  3. PREDNISOLONE [Concomitant]
     Active Substance: PREDNISOLONE
     Indication: Chronic graft versus host disease in eye
  4. PREDNISOLONE [Concomitant]
     Active Substance: PREDNISOLONE
     Indication: Chronic graft versus host disease in eye
  5. PREDNISOLONE [Concomitant]
     Active Substance: PREDNISOLONE
     Indication: Chronic graft versus host disease in liver
  6. CYCLOSPORINE [Concomitant]
     Active Substance: CYCLOSPORINE
     Indication: Chronic graft versus host disease
  7. CYCLOSPORINE [Concomitant]
     Active Substance: CYCLOSPORINE
     Indication: Chronic graft versus host disease
  8. CYCLOSPORINE [Concomitant]
     Active Substance: CYCLOSPORINE
     Indication: Chronic graft versus host disease
  9. CYCLOSPORINE [Concomitant]
     Active Substance: CYCLOSPORINE
     Indication: Chronic graft versus host disease
  10. PREDNISOLONE [Concomitant]
     Active Substance: PREDNISOLONE
     Indication: Chronic graft versus host disease in liver
  11. PREDNISOLONE [Concomitant]
     Active Substance: PREDNISOLONE
     Indication: Chronic graft versus host disease in liver
  12. PREDNISOLONE [Concomitant]
     Active Substance: PREDNISOLONE
     Indication: Chronic graft versus host disease in liver
  13. PREDNISOLONE [Concomitant]
     Active Substance: PREDNISOLONE
     Indication: Chronic graft versus host disease oral
  14. PREDNISOLONE [Concomitant]
     Active Substance: PREDNISOLONE
     Indication: Chronic graft versus host disease oral
  15. PREDNISOLONE [Concomitant]
     Active Substance: PREDNISOLONE
     Indication: Chronic graft versus host disease oral
  16. PREDNISOLONE [Concomitant]
     Active Substance: PREDNISOLONE
     Indication: Chronic graft versus host disease oral
  17. PREDNISOLONE [Concomitant]
     Active Substance: PREDNISOLONE
     Indication: Chronic graft versus host disease oral
  18. PREDNISOLONE [Concomitant]
     Active Substance: PREDNISOLONE
     Indication: Chronic graft versus host disease in eye
  19. PREDNISOLONE [Concomitant]
     Active Substance: PREDNISOLONE
     Indication: Chronic graft versus host disease in eye

REACTIONS (1)
  - Renal impairment [Unknown]

NARRATIVE: CASE EVENT DATE: 20240101
